FAERS Safety Report 5254528-5 (Version None)
Quarter: 2007Q1

REPORT INFORMATION
  Report Type: 
  Country: None (occurrence: None)
  Receive Date: 20070302
  Receipt Date: 20070221
  Transmission Date: 20070707
  Serious: Yes (Other)
  Sender: FDA-Public Use
  Company Number: GB-PFIZER INC-2007010905

PATIENT
  Sex: Female

DRUGS (2)
  1. ISTIN [Suspect]
     Indication: HYPERTENSION
     Route: 048
  2. PERINDOPRIL ERBUMINE [Concomitant]
     Indication: HYPERTENSION
     Route: 048
     Dates: start: 20061219

REACTIONS (2)
  - DYSPNOEA [None]
  - THROAT IRRITATION [None]
